FAERS Safety Report 4928701-7 (Version None)
Quarter: 2006Q1

REPORT INFORMATION
  Report Type: 
  Country: None (occurrence: None)
  Receive Date: 20060301
  Receipt Date: 20060217
  Transmission Date: 20060701
  Serious: Yes (Life-Threatening)
  Sender: FDA-Public Use
  Company Number: AU-AMGEN-US169400

PATIENT
  Sex: Female

DRUGS (6)
  1. NEUPOGEN [Suspect]
     Indication: DRUG USE FOR UNKNOWN INDICATION
     Route: 058
     Dates: start: 20051202, end: 20051207
  2. ARANESP [Concomitant]
     Route: 065
  3. VALACYCLOVIR HCL [Concomitant]
     Route: 065
  4. FLUCONAZOLE [Concomitant]
     Route: 065
  5. THYROXINE SODIUM [Concomitant]
     Route: 065
  6. CLAMOXYL [Concomitant]
     Route: 065

REACTIONS (2)
  - COAGULOPATHY [None]
  - SPLENIC RUPTURE [None]
